FAERS Safety Report 4277826-0 (Version None)
Quarter: 2004Q1

REPORT INFORMATION
  Report Type: 
  Country: None (occurrence: None)
  Receive Date: 20040121
  Receipt Date: 20040105
  Transmission Date: 20041129
  Serious: Yes (Hospitalization)
  Sender: FDA-Public Use
  Company Number: A02200400049

PATIENT
  Age: 77 Year
  Sex: Female

DRUGS (6)
  1. STILNOX - (ZOLPIDEM) - TABLET - 10 MG [Suspect]
     Dosage: ORAL
     Route: 048
     Dates: end: 20031207
  2. FRAXIPARINE - (NADROPARIN CALCIUM) - SOLUTION - [Suspect]
     Dosage: SUBCUTANEOUS
     Route: 058
     Dates: end: 20031210
  3. DOGMATIL - (SULPIRIDE) [Suspect]
     Dosage: ORAL
     Route: 048
     Dates: end: 20031207
  4. ACETAMINOPHEN [Suspect]
     Dates: end: 20031204
  5. ORBENIN CAP [Suspect]
     Dates: end: 20031206
  6. OMEPRAZOLE [Suspect]
     Dosage: ORAL
     Route: 048
     Dates: end: 20031205

REACTIONS (1)
  - HEPATITIS CHOLESTATIC [None]
